FAERS Safety Report 8097059-X (Version None)
Quarter: 2012Q1

REPORT INFORMATION
  Report Type: 
  Country: None (occurrence: None)
  Receive Date: 20120131
  Receipt Date: 20120123
  Transmission Date: 20120608
  Serious: Yes (Life-Threatening, Hospitalization, Other)
  Sender: FDA-Public Use
  Company Number: DE-ABBOTT-12P-062-0896791-00

PATIENT
  Age: 68 Year
  Sex: Male
  Weight: 120 kg

DRUGS (6)
  1. TORSEMIDE [Suspect]
     Indication: PRODUCT USED FOR UNKNOWN INDICATION
     Dosage: DAILY DOSE: 30MG
     Route: 048
     Dates: start: 20100401, end: 20100407
  2. CLARITHROMYCIN [Suspect]
     Indication: LUNG INFECTION
     Route: 048
     Dates: start: 20100330, end: 20100406
  3. CEFUROXIME [Suspect]
     Indication: LUNG INFECTION
     Route: 048
     Dates: start: 20100330, end: 20100406
  4. RAMIPRIL [Concomitant]
     Indication: HYPERTENSION
     Dosage: DAILY DOSE: 5MG
     Dates: start: 20100201, end: 20100407
  5. ALDACTONE [Concomitant]
     Dosage: DAILY DOSE:50 MG
     Dates: start: 20100331, end: 20100407
  6. ALDACTONE [Concomitant]
     Indication: PRODUCT USED FOR UNKNOWN INDICATION
     Dosage: DAILY DOSE:25MG
     Dates: end: 20100331

REACTIONS (5)
  - HYPERVOLAEMIA [None]
  - DIARRHOEA [None]
  - BLOOD CREATININE ABNORMAL [None]
  - RENAL FAILURE ACUTE [None]
  - RENAL TUBULAR NECROSIS [None]
